FAERS Safety Report 5933821-4 (Version None)
Quarter: 2008Q4

REPORT INFORMATION
  Report Type: 
  Country: None (occurrence: None)
  Receive Date: 20081027
  Receipt Date: 20081015
  Transmission Date: 20090506
  Serious: Yes (Life-Threatening, Hospitalization)
  Sender: FDA-Public Use
  Company Number: 230001M08PRT

PATIENT
  Age: 38 Year
  Sex: Female
  Weight: 51 kg

DRUGS (3)
  1. REBIF [Suspect]
     Indication: MULTIPLE SCLEROSIS
     Dosage: 44, 3 IN1 WEEKS, SUBCUTANEOUS
     Route: 058
     Dates: start: 20080708, end: 20080731
  2. DESMOPRESSIN ACETATE [Suspect]
     Indication: URINARY INCONTINENCE
     Dates: end: 20080731
  3. DITROPAN [Suspect]
     Indication: URINARY INCONTINENCE
     Dosage: ORAL
     Route: 048
     Dates: end: 20080731

REACTIONS (6)
  - ANAEMIA [None]
  - DIALYSIS [None]
  - FATIGUE [None]
  - HYPERTENSION [None]
  - MOTOR DYSFUNCTION [None]
  - RENAL FAILURE [None]
